FAERS Safety Report 22067260 (Version 1)
Quarter: 2023Q1

REPORT INFORMATION
  Report Type: Report from Study
  Country: BR (occurrence: BR)
  Receive Date: 20230307
  Receipt Date: 20230307
  Transmission Date: 20230417
  Serious: Yes (Other)
  Sender: FDA-Public Use
  Company Number: BR-CELLTRION INC.-2023BR004656

PATIENT

DRUGS (6)
  1. INFLIXIMAB [Suspect]
     Active Substance: INFLIXIMAB
     Indication: Ankylosing spondylitis
     Dosage: 5 AMPOULES (100MG) EVERY 8 WEEKS
     Route: 042
     Dates: start: 20221019
  2. METHOTREXATE [Concomitant]
     Active Substance: METHOTREXATE
     Indication: Spondylitis
     Dosage: UNK UNK, 1/WEEK
     Route: 048
     Dates: start: 2019
  3. ZOLOFT [Concomitant]
     Active Substance: SERTRALINE HYDROCHLORIDE
     Indication: Depression
     Dosage: 1 PILL PER DAY, STARTED 15 YEARS AGO
     Route: 048
  4. YAZ [Concomitant]
     Active Substance: DROSPIRENONE\ETHINYL ESTRADIOL
     Indication: Contraception
     Dosage: 1 PILL PER DAY
     Route: 048
     Dates: start: 2020
  5. DEXILANT [Concomitant]
     Active Substance: DEXLANSOPRAZOLE
     Dosage: 1 PILL A DAY
     Route: 048
     Dates: start: 2018
  6. HYDROCHLOROTHIAZIDE\LOSARTAN POTASSIUM [Concomitant]
     Active Substance: HYDROCHLOROTHIAZIDE\LOSARTAN POTASSIUM
     Indication: Hypertension
     Dosage: 1 PILL A DAY, STARTED 6 MONTHS AGO
     Route: 048

REACTIONS (9)
  - Uveitis [Unknown]
  - Condition aggravated [Unknown]
  - Urinary tract infection [Recovered/Resolved]
  - Pain in extremity [Unknown]
  - Nausea [Unknown]
  - Malaise [Unknown]
  - Drug ineffective [Unknown]
  - Intentional dose omission [Unknown]
  - Prescribed overdose [Unknown]
